FAERS Safety Report 7104966-0 (Version None)
Quarter: 2010Q4

REPORT INFORMATION
  Report Type: 
  Country: None (occurrence: None)
  Receive Date: 20101116
  Receipt Date: 20101103
  Transmission Date: 20110411
  Serious: Yes (Other)
  Sender: FDA-Public Use
  Company Number: PHHY2010GR74399

PATIENT
  Sex: Female

DRUGS (5)
  1. ACLASTA [Suspect]
  2. ACLASTA [Suspect]
     Dosage: UNK
     Dates: start: 20100601
  3. CIPROXIN [Concomitant]
  4. ZINADOL [Concomitant]
  5. AERIUS [Concomitant]

REACTIONS (3)
  - ASTHMA [None]
  - PAIN IN JAW [None]
  - SWELLING FACE [None]
